FAERS Safety Report 20719961 (Version 1)
Quarter: 2022Q2

REPORT INFORMATION
  Report Type: Spontaneous
  Country: CN (occurrence: CN)
  Receive Date: 20220418
  Receipt Date: 20220418
  Transmission Date: 20220721
  Serious: Yes (Other)
  Sender: FDA-Public Use
  Company Number: CN-PFIZER INC-202200550019

PATIENT
  Age: 73 Year
  Sex: Male
  Weight: 70 kg

DRUGS (3)
  1. MEDROL [Suspect]
     Active Substance: METHYLPREDNISOLONE
     Indication: Choroidal effusion
     Dosage: 50 MG, 1X/DAY
     Route: 048
     Dates: start: 20220328, end: 20220328
  2. METHYLPREDNISOLONE SODIUM SUCCINATE [Suspect]
     Active Substance: METHYLPREDNISOLONE SODIUM SUCCINATE
     Indication: Choroidal effusion
     Dosage: 80 MG, 1X/DAY
     Route: 041
     Dates: start: 20220325, end: 20220327
  3. INSULIN ASPART 30 [Concomitant]
     Indication: Diabetes mellitus
     Dosage: 20IU IN MORNING AND 18IU IN EVENING
     Route: 058

REACTIONS (1)
  - Blood glucose fluctuation [Recovering/Resolving]

NARRATIVE: CASE EVENT DATE: 20220329
